FAERS Safety Report 13560165 (Version 1)
Quarter: 2017Q2

REPORT INFORMATION
  Report Type: Spontaneous
  Country: US (occurrence: US)
  Receive Date: 20170518
  Receipt Date: 20170518
  Transmission Date: 20170830
  Serious: No
  Sender: FDA-Public Use
  Company Number: US-BAYER-2017-094192

PATIENT
  Sex: Male

DRUGS (1)
  1. CLIMARA [Suspect]
     Active Substance: ESTRADIOL
     Indication: TRANSGENDER HORMONAL THERAPY
     Dosage: 0.1 MG ESTRADIOL
     Route: 062
     Dates: start: 201509

REACTIONS (3)
  - Product physical issue [None]
  - Rash erythematous [None]
  - Product adhesion issue [None]
